FAERS Safety Report 19432083 (Version 2)
Quarter: 2021Q2

REPORT INFORMATION
  Report Type: Spontaneous
  Country: ES (occurrence: ES)
  Receive Date: 20210617
  Receipt Date: 20210624
  Transmission Date: 20210717
  Serious: Yes (Other)
  Sender: FDA-Public Use
  Company Number: ES-MYLANLABS-M-EU-2010110193

PATIENT
  Age: 34 Year
  Sex: Female

DRUGS (10)
  1. FLUOROURACIL. [Suspect]
     Active Substance: FLUOROURACIL
     Indication: INVASIVE DUCTAL BREAST CARCINOMA
     Dosage: DAYS 1 AND 4, 2 BOLUS DOSES OF 600 MG/M2
     Route: 040
  2. DOXORUBICIN [Suspect]
     Active Substance: DOXORUBICIN
     Indication: INVASIVE DUCTAL BREAST CARCINOMA
     Dosage: 60 MILLIGRAM/SQ. METER
     Route: 042
  3. GENOXAL [Suspect]
     Active Substance: CYCLOPHOSPHAMIDE
     Indication: INVASIVE DUCTAL BREAST CARCINOMA
     Dosage: 600 MG/M2 ON DAY 1
  4. FLUOROURACIL. [Suspect]
     Active Substance: FLUOROURACIL
     Indication: HORMONE RECEPTOR POSITIVE BREAST CANCER
  5. CYTOXAN [Suspect]
     Active Substance: CYCLOPHOSPHAMIDE
     Indication: INVASIVE DUCTAL BREAST CARCINOMA
     Dosage: 600 MG/M2, UNK
     Route: 042
  6. DOXORUBICIN [Suspect]
     Active Substance: DOXORUBICIN
     Dosage: 50 MILLIGRAM/SQ. METER
     Route: 042
  7. DOXORUBICIN [Suspect]
     Active Substance: DOXORUBICIN
     Indication: HORMONE RECEPTOR POSITIVE BREAST CANCER
     Dosage: UNK
  8. OXYTOCIN. [Suspect]
     Active Substance: OXYTOCIN
     Indication: LABOUR INDUCTION
     Dosage: UNK
     Route: 065
  9. CYTOXAN [Suspect]
     Active Substance: CYCLOPHOSPHAMIDE
     Indication: HORMONE RECEPTOR POSITIVE BREAST CANCER
     Dosage: 50 MILLIGRAM/SQ. METER, CYCLE
  10. DOXORUBICIN [Suspect]
     Active Substance: DOXORUBICIN
     Indication: HORMONE RECEPTOR POSITIVE BREAST CANCER
     Dosage: 50 MILLIGRAM/SQ. METER, CYCLE
     Route: 065

REACTIONS (5)
  - Febrile neutropenia [Recovered/Resolved]
  - Maternal exposure during pregnancy [Unknown]
  - Foetal growth restriction [Unknown]
  - Amniotic fluid volume decreased [Recovered/Resolved]
  - Premature labour [Unknown]
